FAERS Safety Report 5276163-5 (Version None)
Quarter: 2007Q1

REPORT INFORMATION
  Report Type: 
  Country: None (occurrence: None)
  Receive Date: 20070326
  Receipt Date: 20070313
  Transmission Date: 20070707
  Serious: Yes (Death, Hospitalization)
  Sender: FDA-Public Use
  Company Number: DE-SHR-DE-2007-009026

PATIENT
  Age: 83 Year
  Sex: Male
  Weight: 75 kg

DRUGS (7)
  1. FLUDARA 50 MG (SH L 573 A) [Suspect]
     Dosage: 30 MG/M2, 1X/DAY
     Route: 042
     Dates: start: 20060403, end: 20060406
  2. FLUDARA 50 MG (SH L 573 A) [Suspect]
     Dosage: 30 MG/M2, 1X/DAY
     Route: 042
     Dates: start: 20060529, end: 20060531
  3. FLUDARA 50 MG (SH L 573 A) [Suspect]
     Dosage: 30 MG/M2, 1X/DAY
     Dates: start: 20060626, end: 20060629
  4. ZOFRAN [Concomitant]
     Dosage: 8 MG, UNK
     Route: 048
     Dates: start: 20060403, end: 20060630
  5. PREDNISOLONE [Concomitant]
     Dosage: 12.5 MG, UNK
     Dates: start: 20060522
  6. ACETYLSALICYLIC ACID SRT [Concomitant]
     Dosage: 1 TAB(S), AS REQ'D
  7. ALLOPURINOL [Concomitant]
     Dosage: 1 TAB(S), AS REQ'D

REACTIONS (6)
  - ANAEMIA [None]
  - ANOREXIA [None]
  - DEATH [None]
  - FATIGUE [None]
  - PYREXIA [None]
  - THROMBOCYTOPENIA [None]
